FAERS Safety Report 19763843 (Version 5)
Quarter: 2022Q2

REPORT INFORMATION
  Report Type: Report from Study
  Country: FR (occurrence: FR)
  Receive Date: 20210830
  Receipt Date: 20220407
  Transmission Date: 20220721
  Serious: Yes (Hospitalization, Other)
  Sender: FDA-Public Use
  Company Number: FR-TAKEDA-2020TUS057658

PATIENT
  Age: 77 Year
  Sex: Female
  Weight: 70 kg

DRUGS (16)
  1. LANADELUMAB [Suspect]
     Active Substance: LANADELUMAB
     Indication: Product used for unknown indication
     Dosage: 300 MILLIGRAM, Q2WEEKS
     Route: 065
     Dates: start: 20190322
  2. LANADELUMAB [Suspect]
     Active Substance: LANADELUMAB
     Dosage: UNK, EVERY 9 WEEKS
     Route: 058
     Dates: start: 20190402
  3. LANADELUMAB [Suspect]
     Active Substance: LANADELUMAB
     Dosage: 300 MILLIGRAM, Q4WEEKS
     Route: 065
     Dates: start: 20190709
  4. LANADELUMAB [Suspect]
     Active Substance: LANADELUMAB
     Dosage: 300 MILLIGRAM, Q6WEEKS
     Route: 065
     Dates: start: 20191022
  5. LANADELUMAB [Suspect]
     Active Substance: LANADELUMAB
     Dosage: 300 MILLIGRAM, Q7WEEKS
     Route: 065
     Dates: start: 20200121
  6. LANADELUMAB [Suspect]
     Active Substance: LANADELUMAB
     Dosage: 300 MILLIGRAM, Q7WEEKS
     Route: 065
     Dates: start: 20200525
  7. LANADELUMAB [Suspect]
     Active Substance: LANADELUMAB
     Dosage: 300 MILLIGRAM, Q7WEEKS
     Route: 065
     Dates: start: 20201209
  8. LANADELUMAB [Suspect]
     Active Substance: LANADELUMAB
     Dosage: UNK
     Route: 065
  9. LANADELUMAB [Suspect]
     Active Substance: LANADELUMAB
     Dosage: UNK
     Route: 065
  10. LANADELUMAB [Suspect]
     Active Substance: LANADELUMAB
     Dosage: UNK
     Route: 065
  11. LANADELUMAB [Suspect]
     Active Substance: LANADELUMAB
     Dosage: 300 MILLIGRAM, Q8WEEKS
     Route: 065
     Dates: start: 20201209
  12. LANADELUMAB [Suspect]
     Active Substance: LANADELUMAB
     Dosage: 300 MILLIGRAM, Q6WEEKS
     Route: 065
     Dates: start: 20210908
  13. LANADELUMAB [Suspect]
     Active Substance: LANADELUMAB
     Dosage: 300 MILLIGRAM, Q8WEEKS
     Route: 065
     Dates: start: 20211013
  14. LANADELUMAB [Suspect]
     Active Substance: LANADELUMAB
     Dosage: 300 MILLIGRAM, Q8WEEKS
     Route: 065
     Dates: start: 20220325
  15. OBINUTUZUMAB [Concomitant]
     Active Substance: OBINUTUZUMAB
     Indication: Chronic lymphocytic leukaemia
     Dosage: UNK
     Route: 065
     Dates: start: 20210504
  16. CHLORAMBUCIL [Concomitant]
     Active Substance: CHLORAMBUCIL
     Indication: Chronic lymphocytic leukaemia
     Dosage: UNK
     Route: 065
     Dates: start: 20210504

REACTIONS (7)
  - Chronic lymphocytic leukaemia [Not Recovered/Not Resolved]
  - Hospitalisation [Unknown]
  - Asthma [Not Recovered/Not Resolved]
  - Allergy to arthropod bite [Recovering/Resolving]
  - Pruritus [Recovering/Resolving]
  - Off label use [Unknown]
  - Inappropriate schedule of product administration [Unknown]

NARRATIVE: CASE EVENT DATE: 20200128
